FAERS Safety Report 13085120 (Version 1)
Quarter: 2017Q1

REPORT INFORMATION
  Report Type: Report from Study
  Country: US (occurrence: US)
  Receive Date: 20170104
  Receipt Date: 20170104
  Transmission Date: 20170428
  Serious: Yes (Hospitalization)
  Sender: FDA-Public Use
  Company Number: US-GILEAD-2017-0251581

PATIENT
  Age: 79 Year
  Sex: Female

DRUGS (14)
  1. METHOTREXATE. [Concomitant]
     Active Substance: METHOTREXATE
  2. LASIX [Concomitant]
     Active Substance: FUROSEMIDE
  3. ADVAIR HFA [Concomitant]
     Active Substance: FLUTICASONE PROPIONATE\SALMETEROL XINAFOATE
  4. RAMIPRIL. [Concomitant]
     Active Substance: RAMIPRIL
  5. AMBRISENTAN [Suspect]
     Active Substance: AMBRISENTAN
     Indication: PULMONARY HYPERTENSION
     Dosage: 10 MG, QD
     Route: 065
     Dates: start: 20120327
  6. HUMIRA [Concomitant]
     Active Substance: ADALIMUMAB
  7. ALBUTEROL                          /00139501/ [Concomitant]
     Active Substance: ALBUTEROL
  8. HYDROCODONE [Concomitant]
     Active Substance: HYDROCODONE
  9. CARVEDILOL. [Concomitant]
     Active Substance: CARVEDILOL
  10. DIGOXIN. [Concomitant]
     Active Substance: DIGOXIN
  11. METOLAZONE. [Concomitant]
     Active Substance: METOLAZONE
  12. POTASSIUM [Concomitant]
     Active Substance: POTASSIUM
  13. VITAMIN D                          /00107901/ [Concomitant]
     Active Substance: ERGOCALCIFEROL
  14. PREDNISONE. [Concomitant]
     Active Substance: PREDNISONE

REACTIONS (1)
  - Pyrexia [Not Recovered/Not Resolved]

NARRATIVE: CASE EVENT DATE: 20161227
